APPROVED DRUG PRODUCT: VALSARTAN AND HYDROCHLOROTHIAZIDE
Active Ingredient: HYDROCHLOROTHIAZIDE; VALSARTAN
Strength: 12.5MG;80MG
Dosage Form/Route: TABLET;ORAL
Application: A078020 | Product #001 | TE Code: AB
Applicant: MYLAN PHARMACEUTICALS INC
Approved: Sep 21, 2012 | RLD: No | RS: No | Type: RX